FAERS Safety Report 19205623 (Version 1)
Quarter: 2021Q2

REPORT INFORMATION
  Report Type: Spontaneous
  Country: US (occurrence: US)
  Receive Date: 20210503
  Receipt Date: 20210503
  Transmission Date: 20210717
  Serious: No
  Sender: FDA-Public Use
  Company Number: US-FARMAPROD-202101-0095

PATIENT
  Sex: Female

DRUGS (7)
  1. OXERVATE [Suspect]
     Active Substance: CENEGERMIN-BKBJ
     Indication: HYPOAESTHESIA EYE
  2. REFRESH CLASSIC [Concomitant]
     Active Substance: POLYVINYL ALCOHOL\POVIDONE
  3. GABAPENTIN. [Concomitant]
     Active Substance: GABAPENTIN
  4. OXERVATE [Suspect]
     Active Substance: CENEGERMIN-BKBJ
     Indication: NEUROTROPHIC KERATOPATHY
     Route: 047
  5. OMEGA?3 ACIDS [Concomitant]
     Active Substance: OMEGA-3 FATTY ACIDS
  6. MULTIVITAMIN [Concomitant]
     Active Substance: VITAMINS
  7. ARMOUR THYROID [Concomitant]
     Active Substance: THYROID, PORCINE

REACTIONS (6)
  - Pyrexia [Not Recovered/Not Resolved]
  - Eye pain [Unknown]
  - Nausea [Not Recovered/Not Resolved]
  - Headache [Not Recovered/Not Resolved]
  - Accidental overdose [Unknown]
  - Product administration error [Unknown]
